FAERS Safety Report 8055015-1 (Version None)
Quarter: 2012Q1

REPORT INFORMATION
  Report Type: 
  Country: None (occurrence: None)
  Receive Date: 20120119
  Receipt Date: 20120112
  Transmission Date: 20120608
  Serious: Yes (Hospitalization, Congenital Anomaly, Other)
  Sender: FDA-Public Use
  Company Number: US-PFIZER INC-2011105800

PATIENT
  Sex: Male

DRUGS (3)
  1. EFFEXOR [Suspect]
     Dosage: 37.5 MG, 2X/DAY
     Route: 064
     Dates: start: 20100112
  2. EFFEXOR XR [Suspect]
     Dosage: 150 MG, 1X/DAY
     Route: 064
     Dates: start: 20091022, end: 20100218
  3. FLEXERIL [Concomitant]
     Dosage: 10 MG, ONE TABLET AT BED TIME
     Route: 064
     Dates: start: 20091022, end: 20100218

REACTIONS (18)
  - MITRAL VALVE INCOMPETENCE [None]
  - PULMONARY HYPERTENSION [None]
  - FOETAL EXPOSURE DURING PREGNANCY [None]
  - TRACHEOMALACIA [None]
  - LARYNGOMALACIA [None]
  - FAILURE TO THRIVE [None]
  - GASTROOESOPHAGEAL REFLUX DISEASE [None]
  - BRONCHOMALACIA [None]
  - AORTIC VALVE INCOMPETENCE [None]
  - COARCTATION OF THE AORTA [None]
  - ATRIAL SEPTAL DEFECT [None]
  - PECTUS CARINATUM [None]
  - PULMONARY OEDEMA [None]
  - CARDIAC FAILURE CONGESTIVE [None]
  - TRICUSPID VALVE INCOMPETENCE [None]
  - ATRIOVENTRICULAR SEPTAL DEFECT [None]
  - VENTRICULAR SEPTAL DEFECT [None]
  - CARDIOMEGALY [None]
